FAERS Safety Report 14784900 (Version 1)
Quarter: 2018Q2

REPORT INFORMATION
  Report Type: Spontaneous
  Country: KR (occurrence: KR)
  Receive Date: 20180420
  Receipt Date: 20180420
  Transmission Date: 20180711
  Serious: Yes (Other)
  Sender: FDA-Public Use
  Company Number: KR-LANNETT COMPANY, INC.-KR-2018LAN000623

PATIENT
  Age: 51 Year
  Sex: Male

DRUGS (2)
  1. OLMESARTAN MEDOXOMIL. [Concomitant]
     Active Substance: OLMESARTAN MEDOXOMIL
     Indication: HYPERTENSION
     Dosage: 20 MG, UNK
  2. HYDROCHLOROTHIAZIDE; TRIAMTERENE [Suspect]
     Active Substance: HYDROCHLOROTHIAZIDE\TRIAMTERENE
     Indication: HYPERTENSION
     Dosage: 6.25 MG, UNK
     Route: 065

REACTIONS (2)
  - Raynaud^s phenomenon [Recovering/Resolving]
  - Skin necrosis [Recovering/Resolving]
